FAERS Safety Report 7822773-8 (Version None)
Quarter: 2011Q4

REPORT INFORMATION
  Report Type: 
  Country: None (occurrence: None)
  Receive Date: 20111018
  Receipt Date: 20111004
  Transmission Date: 20120403
  Serious: Yes (Hospitalization, Other)
  Sender: FDA-Public Use
  Company Number: US-ELI_LILLY_AND_COMPANY-US201009005216

PATIENT
  Sex: Female

DRUGS (9)
  1. FORTEO [Suspect]
     Dosage: 20 UG, DAILY (1/D)
  2. NEXIUM [Concomitant]
  3. ZYPREXA [Suspect]
     Indication: DELIRIUM
     Dosage: 10 MG, BID
     Dates: start: 20050101
  4. FORTEO [Suspect]
     Dosage: 20 UG, DAILY (1/D)
     Dates: start: 20100601
  5. FORTEO [Suspect]
     Dosage: 20 UG, DAILY (1/D)
  6. LEVOTHYROXINE SODIUM [Concomitant]
  7. FORTEO [Suspect]
     Indication: OSTEOPOROSIS
     Dosage: 20 UG, DAILY (1/D)
  8. FORTEO [Suspect]
     Dosage: 20 UG, DAILY (1/D)
     Dates: start: 20090101
  9. ATIVAN [Concomitant]

REACTIONS (22)
  - POSTOPERATIVE WOUND INFECTION [None]
  - EXTRAVASATION [None]
  - GENERAL PHYSICAL HEALTH DETERIORATION [None]
  - MALAISE [None]
  - PAIN [None]
  - URINARY INCONTINENCE [None]
  - BACK PAIN [None]
  - LIMB INJURY [None]
  - TREMOR [None]
  - WEIGHT INCREASED [None]
  - DEVICE FAILURE [None]
  - MUSCLE SPASMS [None]
  - DRUG INEFFECTIVE [None]
  - OFF LABEL USE [None]
  - MOVEMENT DISORDER [None]
  - FALL [None]
  - INTENTIONAL DRUG MISUSE [None]
  - SURGERY [None]
  - BONE EROSION [None]
  - BACK DISORDER [None]
  - JOINT SWELLING [None]
  - GAIT DISTURBANCE [None]
